FAERS Safety Report 8815586 (Version 2)
Quarter: 2020Q2

REPORT INFORMATION
  Report Type: Spontaneous
  Country: US (occurrence: US)
  Receive Date: 20120928
  Receipt Date: 20200406
  Transmission Date: 20200714
  Serious: Yes (Death, Hospitalization, Other)
  Sender: FDA-Public Use
  Company Number: US-PURDUE-USA-2012-0093648

PATIENT
  Age: 68 Year
  Sex: Male
  Weight: 68.27 kg

DRUGS (2)
  1. METHADONE [Suspect]
     Active Substance: METHADONE HYDROCHLORIDE
     Indication: UNEVALUABLE EVENT
     Dosage: UNK
     Route: 065
     Dates: start: 201204
  2. OXYCONTIN [Suspect]
     Active Substance: OXYCODONE HYDROCHLORIDE
     Indication: PAIN
     Dosage: 480-720 MG, DAILY
     Route: 048
     Dates: start: 1999, end: 2012

REACTIONS (7)
  - Hospitalisation [Unknown]
  - Medical device implantation [Unknown]
  - Fall [Unknown]
  - Quadriplegia [Unknown]
  - Completed suicide [Fatal]
  - Spinal cord injury cervical [Unknown]
  - Gun shot wound [Fatal]

NARRATIVE: CASE EVENT DATE: 2001
